FAERS Safety Report 7409784-1 (Version None)
Quarter: 2011Q2

REPORT INFORMATION
  Report Type: 
  Country: None (occurrence: None)
  Receive Date: 20110412
  Receipt Date: 20110218
  Transmission Date: 20111010
  Serious: Yes (Death, Other)
  Sender: FDA-Public Use
  Company Number: US-BAYER-201026061NA

PATIENT
  Sex: Male

DRUGS (6)
  1. TRASYLOL [Suspect]
     Indication: CORONARY ARTERY BYPASS
     Dosage: UNK
     Route: 042
     Dates: start: 20051101
  2. TRASYLOL [Suspect]
     Indication: ANEURYSMECTOMY
  3. TRASYLOL [Suspect]
     Indication: INTRA-AORTIC BALLOON PLACEMENT
  4. FRESH FROZEN PLASMA [Concomitant]
     Dosage: UNK
     Dates: start: 20051026
  5. TRASYLOL [Suspect]
     Indication: MITRAL VALVE REPLACEMENT
  6. RED BLOOD CELLS [Concomitant]
     Dosage: UNK
     Dates: start: 20051026

REACTIONS (12)
  - STRESS [None]
  - ANXIETY [None]
  - RENAL FAILURE [None]
  - RENAL INJURY [None]
  - RENAL IMPAIRMENT [None]
  - FEAR [None]
  - INJURY [None]
  - DEATH [None]
  - ANHEDONIA [None]
  - EMOTIONAL DISTRESS [None]
  - UNEVALUABLE EVENT [None]
  - PAIN [None]
